FAERS Safety Report 5838617-X (Version None)
Quarter: 2008Q3

REPORT INFORMATION
  Report Type: 
  Country: None (occurrence: None)
  Receive Date: 20080808
  Receipt Date: 20080613
  Transmission Date: 20090109
  Serious: No
  Sender: FDA-Public Use
  Company Number: A0731498A

PATIENT
  Age: 20 Year
  Sex: Male

DRUGS (2)
  1. ALTABAX [Suspect]
     Indication: DRUG USE FOR UNKNOWN INDICATION
     Route: 061
     Dates: start: 20080603
  2. ALLERGY MEDICATION [Concomitant]

REACTIONS (2)
  - BURNING SENSATION [None]
  - PAIN [None]
